FAERS Safety Report 4774738-0 (Version None)
Quarter: 2005Q3

REPORT INFORMATION
  Report Type: 
  Country: None (occurrence: None)
  Receive Date: 20050921
  Receipt Date: 20050817
  Transmission Date: 20060218
  Serious: Yes (Other)
  Sender: FDA-Public Use
  Company Number: GB-GLAXOSMITHKLINE-B0390948A

PATIENT
  Age: 8 Year
  Sex: Male

DRUGS (1)
  1. MALARONE [Suspect]
     Dosage: 1TAB PER DAY
     Route: 048
     Dates: start: 20050801, end: 20050802

REACTIONS (2)
  - GINGIVAL SWELLING [None]
  - TOOTH ABSCESS [None]
